FAERS Safety Report 21420470 (Version 1)
Quarter: 2022Q4

REPORT INFORMATION
  Report Type: Spontaneous
  Country: US (occurrence: US)
  Receive Date: 20221007
  Receipt Date: 20221007
  Transmission Date: 20230113
  Serious: Yes (Other)
  Sender: FDA-Public Use
  Company Number: US-SA-SAC20221004000684

PATIENT
  Age: 60 Year
  Sex: Female

DRUGS (1)
  1. ZANTAC [Suspect]
     Active Substance: RANITIDINE HYDROCHLORIDE
     Indication: Dyspepsia
     Dosage: 75 MG UNK
     Route: 065
     Dates: start: 201601, end: 202112

REACTIONS (1)
  - Pancreatic carcinoma stage IV [Not Recovered/Not Resolved]

NARRATIVE: CASE EVENT DATE: 20210601
